FAERS Safety Report 7208397-4 (Version None)
Quarter: 2011Q1

REPORT INFORMATION
  Report Type: 
  Country: None (occurrence: None)
  Receive Date: 20110104
  Receipt Date: 20101228
  Transmission Date: 20110831
  Serious: Yes (Hospitalization)
  Sender: FDA-Public Use
  Company Number: PHHY2010US87341

PATIENT
  Age: 39 Year
  Sex: Female

DRUGS (6)
  1. ADVAIR [Concomitant]
     Indication: CYSTIC FIBROSIS
     Dosage: 1 PUFF, BID
     Dates: start: 20080101
  2. TOBI [Suspect]
     Indication: PSEUDOMONAS INFECTION
  3. TOBI [Suspect]
     Indication: CYSTIC FIBROSIS
     Dosage: 300 MG, BID X 28 DAYS CYCLE
  4. ALBUTEROL [Concomitant]
     Indication: CYSTIC FIBROSIS
     Dosage: PRN
     Dates: start: 20050101
  5. XOPENEX [Concomitant]
     Indication: CYSTIC FIBROSIS
     Dosage: DAILY
     Dates: start: 20090101
  6. TOBI [Suspect]
     Indication: FORCED EXPIRATORY VOLUME DECREASED

REACTIONS (3)
  - PSEUDOMONAS INFECTION [None]
  - PULMONARY FUNCTION TEST DECREASED [None]
  - UPPER RESPIRATORY TRACT INFECTION [None]
